FAERS Safety Report 4315627-5 (Version None)
Quarter: 2004Q1

REPORT INFORMATION
  Report Type: 
  Country: None (occurrence: None)
  Receive Date: 20040311
  Receipt Date: 20031027
  Transmission Date: 20041129
  Serious: Yes (Death)
  Sender: FDA-Public Use
  Company Number: JP-GLAXOSMITHKLINE-B0313376A

PATIENT
  Age: 32 Year
  Sex: Male

DRUGS (8)
  1. FLOLAN [Suspect]
     Indication: PULMONARY HYPERTENSION
     Route: 042
     Dates: start: 19990101, end: 20030201
  2. NIFEDIPINE [Concomitant]
     Indication: PULMONARY HYPERTENSION
     Dosage: 240MG PER DAY
     Route: 048
     Dates: start: 19860101, end: 20020207
  3. BERAPROST SODIUM [Concomitant]
     Indication: PULMONARY HYPERTENSION
     Route: 048
     Dates: start: 19990101, end: 20020207
  4. FUROSEMIDE [Concomitant]
     Route: 048
  5. SPIRONOLACTONE [Concomitant]
     Route: 048
  6. TRICHLORMETHIAZIDE [Concomitant]
     Route: 048
  7. ZYLORIC [Concomitant]
     Route: 048
  8. AZOSEMIDE [Concomitant]
     Route: 048

REACTIONS (13)
  - ASCITES [None]
  - BLOOD PRESSURE DECREASED [None]
  - CARDIAC FAILURE [None]
  - DERMATITIS [None]
  - DERMATITIS CONTACT [None]
  - HAEMOPTYSIS [None]
  - HAEMORRHAGIC DIATHESIS [None]
  - HEPATOMEGALY [None]
  - INJURY ASPHYXIATION [None]
  - PULMONARY CONGESTION [None]
  - SHOCK HAEMORRHAGIC [None]
  - SINUS ARRHYTHMIA [None]
  - TACHYCARDIA [None]
